FAERS Safety Report 19285040 (Version 11)
Quarter: 2022Q3

REPORT INFORMATION
  Report Type: Report from Study
  Country: GB (occurrence: GB)
  Receive Date: 20210521
  Receipt Date: 20220716
  Transmission Date: 20221026
  Serious: Yes (Hospitalization)
  Sender: FDA-Public Use
  Company Number: None

PATIENT
  Age: 62 Year
  Sex: Female
  Weight: 67.6 kg

DRUGS (48)
  1. CARBOPLATIN [Suspect]
     Active Substance: CARBOPLATIN
     Indication: Small cell lung cancer extensive stage
     Route: 065
     Dates: start: 20210222
  2. ETOPOSIDE [Suspect]
     Active Substance: ETOPOSIDE
     Indication: Small cell lung cancer extensive stage
     Dosage: 180 MG, 1 AS NECESSARY
     Route: 042
     Dates: start: 20210316
  3. ATEZOLIZUMAB [Suspect]
     Active Substance: ATEZOLIZUMAB
     Indication: Small cell lung cancer extensive stage
     Dosage: ON 06/APR/2021, SHE RECEIVED MOST RECENT DOSE OF ATEZOLIZUMAB (1200 MG) PRIOR TO SERIOUS ADVERSE EVE
     Route: 042
     Dates: start: 20210222
  4. BISOPROLOL [Concomitant]
     Active Substance: BISOPROLOL
     Route: 065
  5. CHLORPHENIRAMINE MALEATE [Concomitant]
     Active Substance: CHLORPHENIRAMINE MALEATE
     Route: 065
     Dates: start: 20210406, end: 20210406
  6. DEXAMETHASONE [Concomitant]
     Active Substance: DEXAMETHASONE
     Route: 065
     Dates: start: 20210406, end: 20210406
  7. DIGOXIN [Concomitant]
     Active Substance: DIGOXIN
     Route: 065
  8. POLYETHYLENE GLYCOL 3350\POTASSIUM CHLORIDE\SODIUM BICARBONATE\SODIUM [Concomitant]
     Active Substance: POLYETHYLENE GLYCOL 3350\POTASSIUM CHLORIDE\SODIUM BICARBONATE\SODIUM CHLORIDE
     Route: 065
  9. METFORMIN [Concomitant]
     Active Substance: METFORMIN HYDROCHLORIDE
     Route: 065
     Dates: start: 20210217
  10. ONDANSETRON [Concomitant]
     Active Substance: ONDANSETRON
     Route: 065
     Dates: start: 20210406, end: 20210406
  11. ACETAMINOPHEN [Concomitant]
     Active Substance: ACETAMINOPHEN
     Route: 065
     Dates: start: 20210406, end: 20210406
  12. RAMIPRIL [Concomitant]
     Active Substance: RAMIPRIL
     Route: 065
     Dates: start: 20210512
  13. ALBUTEROL [Concomitant]
     Active Substance: ALBUTEROL
     Route: 065
  14. VITAMIN D3 [Concomitant]
     Active Substance: CHOLECALCIFEROL
     Route: 065
  15. AMOXICILLIN\CLAVULANATE POTASSIUM [Concomitant]
     Active Substance: AMOXICILLIN\CLAVULANATE POTASSIUM
     Route: 065
  16. APIXABAN [Concomitant]
     Active Substance: APIXABAN
  17. VASELINE PURE [Concomitant]
     Active Substance: PETROLATUM
     Route: 065
     Dates: start: 202106
  18. NOVORAPID [Concomitant]
     Active Substance: INSULIN ASPART
     Route: 065
     Dates: start: 20210508, end: 20210510
  19. ACYCLOVIR [Concomitant]
     Active Substance: ACYCLOVIR
     Route: 065
     Dates: start: 202108
  20. AMOXICILLIN [Concomitant]
     Active Substance: AMOXICILLIN
     Dates: start: 20210812, end: 202108
  21. CLOTRIMAZOLE [Concomitant]
     Active Substance: CLOTRIMAZOLE
     Route: 065
     Dates: start: 20210824
  22. DOCUSATE SODIUM [Concomitant]
     Active Substance: DOCUSATE SODIUM
     Route: 065
     Dates: start: 20210825
  23. FLUCONAZOLE [Concomitant]
     Active Substance: FLUCONAZOLE
     Route: 065
     Dates: start: 202108
  24. OMEPRAZOLE [Concomitant]
     Active Substance: OMEPRAZOLE
     Dates: start: 202108
  25. PREDNISOLONE [Concomitant]
     Active Substance: PREDNISOLONE
     Dates: start: 20210822
  26. CIPROFLOXACIN [Concomitant]
     Active Substance: CIPROFLOXACIN
     Dates: start: 20210419
  27. FILGRASTIM [Concomitant]
     Active Substance: FILGRASTIM
     Route: 065
     Dates: start: 20210418
  28. FLUDROCORTISONE [Concomitant]
     Active Substance: FLUDROCORTISONE
     Route: 065
     Dates: start: 20210509
  29. GENTAMICIN [Concomitant]
     Active Substance: GENTAMICIN
     Route: 065
     Dates: start: 20210417
  30. GLICLAZIDE [Concomitant]
     Active Substance: GLICLAZIDE
     Route: 065
     Dates: start: 20210510
  31. HYDROCORTISONE [Concomitant]
     Active Substance: HYDROCORTISONE
     Route: 065
     Dates: start: 202106
  32. PIPERACILLIN SODIUM [Concomitant]
     Active Substance: PIPERACILLIN SODIUM
     Route: 065
     Dates: start: 20210417
  33. TAZOBACTAM SODIUM [Concomitant]
     Active Substance: TAZOBACTAM SODIUM
     Route: 065
     Dates: start: 20210417
  34. SODIUM CHLORIDE [Concomitant]
     Active Substance: SODIUM CHLORIDE
     Route: 065
     Dates: start: 20210416
  35. LANOLIN\LIGHT MINERAL OIL\PARAFFIN [Concomitant]
     Active Substance: LANOLIN\LIGHT MINERAL OIL\PARAFFIN
     Dosage: LIQUID
     Dates: start: 202106
  36. PARAFFIN\WAX, EMULSIFYING [Concomitant]
     Active Substance: PARAFFIN\WAX, EMULSIFYING
  37. PARAFFIN [Concomitant]
     Active Substance: PARAFFIN
     Dosage: WHITE
  38. ETOPOSIDE [Suspect]
     Active Substance: ETOPOSIDE
     Indication: Product used for unknown indication
     Route: 048
     Dates: start: 20210316
  39. DEXAMETHASONE [Concomitant]
     Active Substance: DEXAMETHASONE
     Route: 065
     Dates: start: 20210316, end: 20210316
  40. ONDANSETRON [Concomitant]
     Active Substance: ONDANSETRON
     Route: 065
     Dates: start: 20210316, end: 20210316
  41. ACETAMINOPHEN [Concomitant]
     Active Substance: ACETAMINOPHEN
     Route: 065
     Dates: start: 202106
  42. HYDROCORTISONE [Concomitant]
     Active Substance: HYDROCORTISONE
     Route: 065
     Dates: start: 20210505, end: 20210509
  43. DEXAMETHASONE [Concomitant]
     Active Substance: DEXAMETHASONE
     Route: 065
     Dates: start: 20100222, end: 20100222
  44. ETOPOSIDE [Suspect]
     Active Substance: ETOPOSIDE
     Indication: Small cell lung cancer extensive stage
     Dosage: 180 MG, 1 AS NECESSARY
     Route: 048
     Dates: start: 20210316
  45. ETOPOSIDE [Suspect]
     Active Substance: ETOPOSIDE
     Indication: Small cell lung cancer extensive stage
     Route: 065
     Dates: start: 20210317
  46. ETOPOSIDE [Suspect]
     Active Substance: ETOPOSIDE
     Indication: Small cell lung cancer extensive stage
     Route: 048
     Dates: start: 20210407
  47. ONDANSETRON [Concomitant]
     Active Substance: ONDANSETRON
     Route: 065
     Dates: start: 20100222, end: 20100222
  48. ATEZOLIZUMAB [Suspect]
     Active Substance: ATEZOLIZUMAB
     Indication: Small cell lung cancer extensive stage
     Dosage: ON 06/APR/2021, SHE RECEIVED MOST RECENT DOSE OF ATEZOLIZUMAB (1200 MG) PRIOR TO SERIOUS ADVERSE EVE
     Route: 065
     Dates: start: 20210427

REACTIONS (6)
  - Platelet count decreased [Recovered/Resolved]
  - Mucosal inflammation [Recovered/Resolved]
  - Neutrophil count decreased [Recovered/Resolved]
  - Hyperglycaemia [Not Recovered/Not Resolved]
  - Anaemia [Recovered/Resolved]
  - Pancytopenia [Not Recovered/Not Resolved]

NARRATIVE: CASE EVENT DATE: 20210416
